FAERS Safety Report 13523354 (Version 1)
Quarter: 2017Q2

REPORT INFORMATION
  Report Type: Spontaneous
  Country: US (occurrence: US)
  Receive Date: 20170508
  Receipt Date: 20170508
  Transmission Date: 20170830
  Serious: No
  Sender: FDA-Public Use
  Company Number: US-VIFOR (INTERNATIONAL) INC.-VIT-2017-02878

PATIENT
  Age: 74 Year
  Sex: Female

DRUGS (13)
  1. DOXYCYCLINE HYCLATE. [Concomitant]
     Active Substance: DOXYCYCLINE HYCLATE
  2. FLUTICASONE. [Concomitant]
     Active Substance: FLUTICASONE
  3. VELTASSA [Suspect]
     Active Substance: PATIROMER
     Indication: HYPERKALAEMIA
     Route: 048
     Dates: start: 20161222
  4. CLONIDINE. [Concomitant]
     Active Substance: CLONIDINE
  5. RANITIDINE. [Concomitant]
     Active Substance: RANITIDINE
  6. CLONIDINE. [Concomitant]
     Active Substance: CLONIDINE
     Dosage: 0.3/24HOUR
  7. BUMETANIDE. [Concomitant]
     Active Substance: BUMETANIDE
  8. ZEMPLAR [Concomitant]
     Active Substance: PARICALCITOL
  9. CALCITRIOL. [Concomitant]
     Active Substance: CALCITRIOL
  10. METRONIDAZOLE. [Concomitant]
     Active Substance: METRONIDAZOLE
  11. HYDRALAZINE [Concomitant]
     Active Substance: HYDRALAZINE HYDROCHLORIDE
  12. CLOTRIM BETA [Concomitant]
  13. CYANOCOBALAMIN. [Concomitant]
     Active Substance: CYANOCOBALAMIN

REACTIONS (2)
  - Drug dose omission [Unknown]
  - Memory impairment [Unknown]

NARRATIVE: CASE EVENT DATE: 201612
